FAERS Safety Report 17488993 (Version 3)
Quarter: 2020Q1

REPORT INFORMATION
  Report Type: Report from Study
  Country: US (occurrence: US)
  Receive Date: 20200303
  Receipt Date: 20200319
  Transmission Date: 20200409
  Serious: Yes (Other)
  Sender: FDA-Public Use
  Company Number: US-PFIZER INC-2020093364

PATIENT
  Age: 54 Year
  Sex: Female

DRUGS (3)
  1. FASLODEX [Concomitant]
     Active Substance: FULVESTRANT
     Dosage: UNK
  2. IBRANCE [Suspect]
     Active Substance: PALBOCICLIB
     Indication: BREAST CANCER
     Dosage: 125 MG, CYCLIC (DAILY 21 DAYS, OFF 7 DAYS)
     Route: 048
     Dates: start: 20200226
  3. IBRANCE [Suspect]
     Active Substance: PALBOCICLIB
     Dosage: 125 MG, CYCLIC (DAILY 21 DAYS, OFF 7 DAYS)
     Route: 048

REACTIONS (10)
  - Diarrhoea [Unknown]
  - Mental impairment [Unknown]
  - Insomnia [Unknown]
  - Fatigue [Unknown]
  - Migraine [Unknown]
  - Pruritus [Unknown]
  - Headache [Unknown]
  - Oral pain [Unknown]
  - Nausea [Unknown]
  - Pyrexia [Unknown]
